FAERS Safety Report 5178758-6 (Version None)
Quarter: 2006Q4

REPORT INFORMATION
  Report Type: 
  Country: None (occurrence: None)
  Receive Date: 20061218
  Receipt Date: 20060810
  Transmission Date: 20070319
  Serious: No
  Sender: FDA-Public Use
  Company Number: US-AMGEN-KDL189777

PATIENT
  Sex: Male

DRUGS (2)
  1. ENBREL [Suspect]
     Indication: PSORIATIC ARTHROPATHY
     Route: 058
     Dates: start: 20030130
  2. ENBREL [Suspect]
     Indication: PSORIASIS

REACTIONS (4)
  - CHILLS [None]
  - PHARYNGOLARYNGEAL PAIN [None]
  - STREPTOCOCCAL INFECTION [None]
  - VOMITING [None]
